FAERS Safety Report 6210579-5 (Version None)
Quarter: 2009Q2

REPORT INFORMATION
  Report Type: 
  Country: None (occurrence: None)
  Receive Date: 20090601
  Receipt Date: 20090525
  Transmission Date: 20091009
  Serious: Yes (Death)
  Sender: FDA-Public Use
  Company Number: B0543890A

PATIENT
  Sex: Male

DRUGS (7)
  1. KIVEXA [Suspect]
     Indication: HIV INFECTION
     Route: 048
     Dates: start: 20051214, end: 20080429
  2. NORVIR [Suspect]
     Indication: HIV INFECTION
     Route: 048
     Dates: start: 20050515, end: 20080429
  3. REYATAZ [Suspect]
     Indication: HIV INFECTION
     Route: 048
     Dates: start: 20050515
  4. COMBIVIR [Suspect]
     Indication: HIV INFECTION
     Route: 048
     Dates: start: 20050515, end: 20050715
  5. FUZEON [Suspect]
     Indication: HIV INFECTION
     Route: 058
     Dates: start: 20050515, end: 20051214
  6. TELZIR [Concomitant]
     Indication: HIV INFECTION
     Route: 048
     Dates: start: 20060907, end: 20061005
  7. VIDEX [Concomitant]
     Indication: HIV INFECTION
     Route: 048
     Dates: start: 20050715, end: 20051214

REACTIONS (3)
  - CARDIOVASCULAR DISORDER [None]
  - DRUG INTERACTION [None]
  - HAEMATOTOXICITY [None]
